FAERS Safety Report 19310897 (Version 1)
Quarter: 2021Q2

REPORT INFORMATION
  Report Type: Report from Study
  Country: JP (occurrence: JP)
  Receive Date: 20210526
  Receipt Date: 20210526
  Transmission Date: 20210717
  Serious: Yes (Other)
  Sender: FDA-Public Use
  Company Number: JP-AMGEN-JPN-20191101635

PATIENT
  Age: 67 Year
  Sex: Male
  Weight: 65 kg

DRUGS (1)
  1. APREMILAST [Suspect]
     Active Substance: APREMILAST
     Indication: PSORIASIS
     Dosage: UNK
     Route: 048
     Dates: start: 20191009

REACTIONS (2)
  - Ileus [Unknown]
  - Atrioventricular block complete [Unknown]

NARRATIVE: CASE EVENT DATE: 20191105
